FAERS Safety Report 4998266-2 (Version None)
Quarter: 2006Q2

REPORT INFORMATION
  Report Type: 
  Country: None (occurrence: None)
  Receive Date: 20060510
  Receipt Date: 20050113
  Transmission Date: 20061013
  Serious: Yes (Hospitalization, Other)
  Sender: FDA-Public Use
  Company Number: US-MERCK-0501USA02234

PATIENT
  Age: 59 Year
  Sex: Male
  Weight: 100 kg

DRUGS (12)
  1. VIOXX [Suspect]
     Indication: PAIN
     Route: 048
     Dates: start: 20010101, end: 20041001
  2. VIOXX [Suspect]
     Route: 048
     Dates: start: 20010101, end: 20041001
  3. WYGESIC TABLETS [Concomitant]
     Route: 065
  4. ATENOLOL [Concomitant]
     Route: 065
  5. KLONOPIN [Concomitant]
     Route: 065
  6. ADALAT [Concomitant]
     Route: 065
  7. PREVACID [Concomitant]
     Route: 065
  8. RENAGEL [Concomitant]
     Route: 065
  9. NITROQUICK [Concomitant]
     Route: 065
  10. BEXTRA [Concomitant]
     Route: 065
  11. NAPROXEN [Concomitant]
     Route: 065
  12. FERROUS SULFATE [Concomitant]
     Route: 065

REACTIONS (19)
  - ACUTE MYOCARDIAL INFARCTION [None]
  - ASPIRATION [None]
  - ATRIAL FIBRILLATION [None]
  - CARDIAC FAILURE CONGESTIVE [None]
  - CATHETER SEPSIS [None]
  - CEREBROVASCULAR ACCIDENT [None]
  - CLOSTRIDIUM DIFFICILE COLITIS [None]
  - CORONARY ARTERY DISEASE [None]
  - DIABETES MELLITUS NON-INSULIN-DEPENDENT [None]
  - DYSPHAGIA [None]
  - ENTEROCOCCAL INFECTION [None]
  - HYPERKALAEMIA [None]
  - HYPOTENSION [None]
  - HYPOXIA [None]
  - MYOCARDIAL INFARCTION [None]
  - OVERDOSE [None]
  - RECTAL HAEMORRHAGE [None]
  - RESPIRATORY FAILURE [None]
  - THERAPEUTIC AGENT TOXICITY [None]
